FAERS Safety Report 10889718 (Version 2)
Quarter: 2015Q2

REPORT INFORMATION
  Report Type: Spontaneous
  Country: US (occurrence: US)
  Receive Date: 20150306
  Receipt Date: 20150513
  Transmission Date: 20150821
  Serious: No
  Sender: FDA-Public Use
  Company Number: US-009507513-1502USA003968

PATIENT
  Sex: Female

DRUGS (1)
  1. IMPLANON [Suspect]
     Active Substance: ETONOGESTREL
     Indication: CONTRACEPTION
     Dosage: STRENGTH: 68(UNIT UNKNOWN)
     Route: 059
     Dates: start: 2012

REACTIONS (6)
  - Incorrect drug administration duration [Unknown]
  - Complication of device removal [Unknown]
  - Medical device complication [Recovered/Resolved]
  - Anaemia [Unknown]
  - Headache [Unknown]
  - Vaginal haemorrhage [Unknown]

NARRATIVE: CASE EVENT DATE: 2012
